FAERS Safety Report 13304707 (Version 2)
Quarter: 2017Q1

REPORT INFORMATION
  Report Type: Spontaneous
  Country: US (occurrence: US)
  Receive Date: 20170308
  Receipt Date: 20170314
  Transmission Date: 20170428
  Serious: Yes (Life-Threatening)
  Sender: FDA-Public Use
  Company Number: PHHY2017US030698

PATIENT
  Age: 62 Year
  Sex: Female

DRUGS (1)
  1. SULFAMETHOXAZOLE+TRIMETHOPRIM [Suspect]
     Active Substance: SULFAMETHOXAZOLE\TRIMETHOPRIM
     Indication: COLITIS ULCERATIVE
     Route: 065

REACTIONS (2)
  - Serositis [Recovered/Resolved]
  - Lupus-like syndrome [Recovered/Resolved]
